FAERS Safety Report 13576732 (Version 1)
Quarter: 2017Q2

REPORT INFORMATION
  Report Type: Spontaneous
  Country: US (occurrence: US)
  Receive Date: 20170524
  Receipt Date: 20170524
  Transmission Date: 20170830
  Serious: Yes (Other)
  Sender: FDA-Public Use
  Company Number: None

PATIENT
  Age: 32 Year
  Sex: Female
  Weight: 94.5 kg

DRUGS (4)
  1. OCALIVA [Suspect]
     Active Substance: OBETICHOLIC ACID
     Indication: CHOLANGITIS
     Route: 048
     Dates: start: 20170306
  2. MIDODRINE [Concomitant]
     Active Substance: MIDODRINE
  3. KLONOPIN [Concomitant]
     Active Substance: CLONAZEPAM
  4. QUESTRAN [Concomitant]
     Active Substance: CHOLESTYRAMINE

REACTIONS (2)
  - Vision blurred [None]
  - Cataract [None]

NARRATIVE: CASE EVENT DATE: 20170412
